FAERS Safety Report 6246258-8 (Version None)
Quarter: 2009Q2

REPORT INFORMATION
  Report Type: 
  Country: None (occurrence: None)
  Receive Date: 20090626
  Receipt Date: 20071121
  Transmission Date: 20091009
  Serious: Yes (Death, Hospitalization)
  Sender: FDA-Public Use
  Company Number: US-ASTRAZENECA-2006UW21563

PATIENT
  Age: 435 Month
  Sex: Female
  Weight: 125.1 kg

DRUGS (72)
  1. SEROQUEL [Suspect]
     Indication: DEPRESSION
     Dosage: 25 MG, 100 MG, 200 MG, 300 MG AND 600 MG - 1200 MG
     Route: 048
     Dates: start: 20020507
  2. EFFEXOR [Concomitant]
     Route: 048
     Dates: start: 20021017
  3. EFFEXOR [Concomitant]
     Dates: start: 20051001, end: 20051101
  4. WELLBUTRIN [Concomitant]
     Route: 048
     Dates: start: 20021029
  5. ATIVAN [Concomitant]
     Route: 048
     Dates: start: 20020422
  6. AMBIEN [Concomitant]
     Route: 048
     Dates: start: 20020809
  7. PAXIL [Concomitant]
     Route: 048
     Dates: start: 20030407
  8. POTASSIUM CHLORIDE [Concomitant]
     Dosage: 10MEQ-40MEQ
     Route: 048
     Dates: start: 20021115
  9. SERZONE [Concomitant]
     Route: 048
     Dates: start: 20021029
  10. NEXIUM [Concomitant]
     Route: 048
     Dates: start: 20020911
  11. AMITRIPTYLINE HCL [Concomitant]
     Route: 048
     Dates: start: 20020930
  12. HYDROCHLOROTHIAZIDE [Concomitant]
     Route: 048
     Dates: start: 20020515
  13. ESTRATEST [Concomitant]
     Dosage: EVERYDAY
     Route: 048
     Dates: start: 20030724
  14. SYNTHROID [Concomitant]
     Dosage: 75 MCG,EVERYDAY
     Route: 048
     Dates: start: 20021103
  15. DETROL LA [Concomitant]
  16. SINGULAIR [Concomitant]
     Route: 048
     Dates: start: 20021103
  17. CLARINEX [Concomitant]
  18. CYCLOBENZAPRINE [Concomitant]
  19. MAXALT [Concomitant]
  20. NEURONTIN [Concomitant]
     Route: 048
     Dates: start: 20021111
  21. DITROPAN XL [Concomitant]
  22. PREDNISONE [Concomitant]
     Dates: start: 20021108
  23. COMPAZINE [Concomitant]
  24. COMBIVENT [Concomitant]
  25. SEREVENT [Concomitant]
  26. PULMICORT-100 [Concomitant]
  27. FOSAMAX [Concomitant]
  28. ZYRTEC [Concomitant]
  29. LASIX [Concomitant]
     Route: 048
     Dates: start: 20030721
  30. VICODIN [Concomitant]
  31. TIZANIDINE [Concomitant]
  32. TRIAMCINOLONE [Concomitant]
  33. PREVACID [Concomitant]
  34. HYOSCYAMINE [Concomitant]
  35. CARDIZEM [Concomitant]
  36. PLAQUENIL [Concomitant]
  37. DARVOCET [Concomitant]
  38. LEVAQUIN [Concomitant]
  39. ACTOS [Concomitant]
  40. PROMETHAZINE [Concomitant]
  41. FLOVENT [Concomitant]
  42. MAXZIDE [Concomitant]
  43. DIFLUCAN [Concomitant]
  44. TUSSIONEX [Concomitant]
  45. OXYCODONE HCL [Concomitant]
  46. ZITHROMAX [Concomitant]
  47. MYCELEX [Concomitant]
  48. METOPROLOL SUCCINATE [Concomitant]
  49. XENICAL [Concomitant]
  50. CLONIDINE [Concomitant]
  51. OMEPRAZOLE [Concomitant]
  52. CLINDAMYCIN [Concomitant]
  53. CIPRO [Concomitant]
  54. KADIAN [Concomitant]
  55. ZOFRAN [Concomitant]
  56. ZAROXOLYN [Concomitant]
  57. DURAGESIC-100 [Concomitant]
  58. ROBITUSSIN [Concomitant]
  59. REGLAN [Concomitant]
  60. LIDODERM [Concomitant]
  61. CHERATUSSIN [Concomitant]
  62. PHENAZOPYRIDINE HCL TAB [Concomitant]
  63. ALBUTEROL [Concomitant]
  64. REMERON [Concomitant]
  65. FLURAZEPAM [Concomitant]
  66. DESMOPRESSIN ACETATE [Concomitant]
  67. CELEBREX [Concomitant]
  68. IMITREX [Concomitant]
  69. VIOXX [Concomitant]
  70. PRILOSEC [Concomitant]
     Route: 048
     Dates: start: 20030724
  71. FLEXERIL [Concomitant]
  72. HYDROXYCHLOROQUINE SULFATE [Concomitant]
     Route: 048
     Dates: start: 20021130

REACTIONS (19)
  - ABDOMINAL PAIN [None]
  - ACIDOSIS [None]
  - CARDIAC ARREST [None]
  - CHOLECYSTITIS [None]
  - CHOLELITHIASIS [None]
  - DEATH [None]
  - FLUID OVERLOAD [None]
  - GASTRIC BYPASS [None]
  - GASTROOESOPHAGEAL REFLUX DISEASE [None]
  - HYPERTENSION [None]
  - HYPOTENSION [None]
  - PNEUMOPERITONEUM [None]
  - PYELONEPHRITIS [None]
  - RESPIRATORY FAILURE [None]
  - SEPTIC SHOCK [None]
  - SLEEP APNOEA SYNDROME [None]
  - TACHYCARDIA [None]
  - TYPE 1 DIABETES MELLITUS [None]
  - TYPE 2 DIABETES MELLITUS [None]
